FAERS Safety Report 11479972 (Version 1)
Quarter: 2015Q3

REPORT INFORMATION
  Report Type: Spontaneous
  Country: FR (occurrence: FR)
  Receive Date: 20150909
  Receipt Date: 20150909
  Transmission Date: 20151125
  Serious: Yes (Hospitalization)
  Sender: FDA-Public Use
  Company Number: FR-ASTRAZENECA-2015SE86146

PATIENT
  Age: 25201 Day
  Sex: Female

DRUGS (27)
  1. CLOPIXOL [Suspect]
     Active Substance: ZUCLOPENTHIXOL ACETATE
     Indication: BIPOLAR I DISORDER
     Route: 048
     Dates: start: 20150327, end: 20150330
  2. CLOPIXOL [Suspect]
     Active Substance: ZUCLOPENTHIXOL ACETATE
     Indication: BIPOLAR I DISORDER
     Dosage: AS REQUIRED
     Route: 048
     Dates: start: 20150405, end: 20150405
  3. HALDOL [Suspect]
     Active Substance: HALOPERIDOL
     Indication: BIPOLAR I DISORDER
     Route: 048
     Dates: start: 20150320, end: 20150401
  4. NOCTAMIDE [Suspect]
     Active Substance: LORMETAZEPAM
     Indication: INSOMNIA
     Route: 048
     Dates: start: 20150316, end: 20150401
  5. NOCTAMIDE [Suspect]
     Active Substance: LORMETAZEPAM
     Indication: INSOMNIA
     Route: 048
     Dates: start: 20150404
  6. LOXAPAC [Concomitant]
     Active Substance: LOXAPINE SUCCINATE
     Indication: BIPOLAR I DISORDER
     Dosage: ?
     Route: 048
     Dates: start: 20150304, end: 20150320
  7. HALDOL [Suspect]
     Active Substance: HALOPERIDOL
     Indication: BIPOLAR I DISORDER
     Route: 048
     Dates: start: 20150505
  8. HALDOL [Suspect]
     Active Substance: HALOPERIDOL
     Indication: BIPOLAR I DISORDER
     Route: 048
     Dates: start: 20150404, end: 20150505
  9. XEROQUEL [Suspect]
     Active Substance: QUETIAPINE FUMARATE
     Indication: BIPOLAR I DISORDER
     Route: 048
     Dates: start: 20150121, end: 20150401
  10. XEROQUEL [Suspect]
     Active Substance: QUETIAPINE FUMARATE
     Indication: BIPOLAR I DISORDER
     Route: 048
     Dates: start: 20150404
  11. CLOPIXOL [Suspect]
     Active Substance: ZUCLOPENTHIXOL ACETATE
     Indication: BIPOLAR I DISORDER
     Route: 048
     Dates: start: 20150404, end: 20150404
  12. PARKINANE [Suspect]
     Active Substance: TRIHEXYPHENIDYL HYDROCHLORIDE
     Indication: BIPOLAR I DISORDER
     Route: 048
     Dates: start: 20150309, end: 20150401
  13. TERALITHE [Concomitant]
     Active Substance: LITHIUM CARBONATE
     Route: 048
     Dates: start: 20150404
  14. LOXAPAC [Concomitant]
     Active Substance: LOXAPINE SUCCINATE
     Indication: BIPOLAR I DISORDER
     Route: 048
     Dates: start: 20150320, end: 20150327
  15. NORMACOL [Concomitant]
     Active Substance: KARAYA GUM
     Dosage: ONE TO TWO  SOLUTIONS PER DAY
     Route: 054
  16. LOXAPAC [Concomitant]
     Active Substance: LOXAPINE SUCCINATE
     Indication: BIPOLAR I DISORDER
     Route: 048
     Dates: start: 20150206, end: 20150210
  17. LOXAPAC [Concomitant]
     Active Substance: LOXAPINE SUCCINATE
     Indication: BIPOLAR I DISORDER
     Route: 048
     Dates: start: 20150210, end: 20150304
  18. TRANSIPEG [Concomitant]
     Active Substance: POLYETHYLENE GLYCOL 3350
     Dosage: TWO TO FOUR SACHETS PER DAY
     Route: 048
  19. CLOPIXOL [Suspect]
     Active Substance: ZUCLOPENTHIXOL ACETATE
     Indication: BIPOLAR I DISORDER
     Route: 048
     Dates: start: 20150330, end: 20150401
  20. HALDOL [Suspect]
     Active Substance: HALOPERIDOL
     Indication: BIPOLAR I DISORDER
     Route: 048
     Dates: start: 20150121, end: 20150320
  21. PARKINANE [Suspect]
     Active Substance: TRIHEXYPHENIDYL HYDROCHLORIDE
     Indication: BIPOLAR I DISORDER
     Route: 048
     Dates: start: 20150404
  22. TERALITHE [Concomitant]
     Active Substance: LITHIUM CARBONATE
     Route: 048
     Dates: start: 20150316, end: 20150320
  23. PREVISCAN [Concomitant]
     Active Substance: FLUINDIONE
     Dosage: 0.25 TO 1 TABLET OF 20 MG PER DAY
     Route: 048
     Dates: start: 20141022
  24. FORTRANS [Concomitant]
     Route: 048
  25. TERALITHE [Concomitant]
     Active Substance: LITHIUM CARBONATE
     Route: 048
     Dates: start: 20150320, end: 20150401
  26. SERESTA [Concomitant]
     Active Substance: OXAZEPAM
     Route: 048
     Dates: start: 20150121
  27. DUPHALAC [Concomitant]
     Active Substance: LACTULOSE
     Dosage: ONE TO THREE SACHETS PER DAY
     Route: 048

REACTIONS (1)
  - Intestinal obstruction [Recovered/Resolved]

NARRATIVE: CASE EVENT DATE: 20150404
